FAERS Safety Report 8832230 (Version 2)
Quarter: 2012Q4

REPORT INFORMATION
  Report Type: 
  Country: CN (occurrence: CN)
  Receive Date: 20121009
  Receipt Date: 20121030
  Transmission Date: 20130627
  Serious: Yes (Life-Threatening)
  Sender: FDA-Public Use
  Company Number: CN-BRISTOL-MYERS SQUIBB COMPANY-17007121

PATIENT
  Age: 66 Year
  Sex: Male

DRUGS (4)
  1. BARACLUDE [Suspect]
     Route: 048
     Dates: start: 20120924, end: 20120924
  2. GLUTATHIONE [Concomitant]
     Dosage: Injection
     Dates: start: 20120917, end: 20120924
  3. PHOSPHATIDYLCHOLINE [Concomitant]
     Dosage: Polyene phosphatidylcholine
     Dates: start: 20120917, end: 20120924
  4. GLYCYRRHIZINIC ACID [Concomitant]
     Dosage: Glycyrrhizinic acid injection
     Dates: start: 20120917, end: 20120924

REACTIONS (4)
  - Atrial fibrillation [Recovered/Resolved]
  - Ventricular extrasystoles [Recovering/Resolving]
  - Ventricular tachycardia [Recovering/Resolving]
  - Electrocardiogram ST-T change [Recovering/Resolving]
